FAERS Safety Report 7764057-2 (Version None)
Quarter: 2011Q3

REPORT INFORMATION
  Report Type: 
  Country: None (occurrence: None)
  Receive Date: 20110921
  Receipt Date: 20110915
  Transmission Date: 20111222
  Serious: No
  Sender: FDA-Public Use
  Company Number: US-PFIZER INC-2011219296

PATIENT
  Sex: Female
  Weight: 55.329 kg

DRUGS (2)
  1. ACYCLOVIR [Concomitant]
     Dosage: 400 MG, 1X/DAY
  2. PRISTIQ [Suspect]
     Indication: DEPRESSION
     Dosage: 50 MG, 1X/DAY
     Route: 048
     Dates: start: 20110201

REACTIONS (1)
  - ANXIETY [None]
